FAERS Safety Report 9371341 (Version 1)
Quarter: 2013Q3

REPORT INFORMATION
  Report Type: Spontaneous
  Country: US (occurrence: None)
  Receive Date: 20130626
  Receipt Date: 20130626
  Transmission Date: 20140515
  Serious: Yes (Hospitalization, Other)
  Sender: FDA-Public Use
  Company Number: None

PATIENT
  Age: 70 Year
  Sex: Female

DRUGS (1)
  1. FRESENIUS SALINE [Suspect]
     Indication: HAEMODIALYSIS
     Dosage: IV VIA AV FISTULA
     Dates: start: 20130507

REACTIONS (4)
  - Restlessness [None]
  - Agitation [None]
  - Mental status changes [None]
  - Cellulitis [None]
